FAERS Safety Report 17964473 (Version 2)
Quarter: 2020Q3

REPORT INFORMATION
  Report Type: Spontaneous
  Country: US (occurrence: PT)
  Receive Date: 20200630
  Receipt Date: 20200703
  Transmission Date: 20201103
  Serious: Yes (Other)
  Sender: FDA-Public Use
  Company Number: PT-ROCHE-2630671

PATIENT
  Age: 41 Year
  Sex: Female

DRUGS (20)
  1. NEVIRAPINE. [Suspect]
     Active Substance: NEVIRAPINE
     Indication: PRODUCT USED FOR UNKNOWN INDICATION
     Dosage: UNK
     Route: 065
     Dates: start: 2003, end: 2005
  2. PEGASYS [Suspect]
     Active Substance: PEGINTERFERON ALFA-2A
     Route: 065
     Dates: start: 200804, end: 200805
  3. EFAVIRENZ. [Suspect]
     Active Substance: EFAVIRENZ
     Indication: ANTIRETROVIRAL THERAPY
     Dosage: UNK
     Route: 065
     Dates: start: 2003
  4. LAMIVUDINE. [Suspect]
     Active Substance: LAMIVUDINE
     Indication: ANTIRETROVIRAL THERAPY
     Dosage: UNK
     Route: 065
     Dates: start: 2003, end: 2005
  5. INDINAVIR [Suspect]
     Active Substance: INDINAVIR
     Indication: ANTIRETROVIRAL THERAPY
     Dosage: 2005?2006?2006?UNK
     Route: 065
     Dates: start: 2005, end: 2006
  6. PEGASYS [Suspect]
     Active Substance: PEGINTERFERON ALFA-2A
     Indication: PRODUCT USED FOR UNKNOWN INDICATION
     Dosage: UNK
     Route: 065
     Dates: start: 200804, end: 200805
  7. RITONAVIR. [Suspect]
     Active Substance: RITONAVIR
     Indication: PRODUCT USED FOR UNKNOWN INDICATION
     Dosage: 2005?06?2006?UNK
     Route: 065
     Dates: start: 2005
  8. RIBAVIRIN. [Suspect]
     Active Substance: RIBAVIRIN
     Dosage: 1000 MG
     Route: 065
     Dates: start: 2005, end: 2006
  9. TENOFOVIR [Suspect]
     Active Substance: TENOFOVIR
     Indication: ANTIRETROVIRAL THERAPY
     Dosage: 2005?UNK?JUL10?UNK
     Route: 065
     Dates: start: 2005
  10. ZIDOVUDINE. [Suspect]
     Active Substance: ZIDOVUDINE
     Indication: ANTIRETROVIRAL THERAPY
     Dosage: 2003?2005?2005?2005
     Route: 065
     Dates: start: 2003, end: 2005
  11. ABACAVIR. [Suspect]
     Active Substance: ABACAVIR
     Indication: ANTIRETROVIRAL THERAPY
     Dosage: UNK
     Route: 065
     Dates: start: 201007
  12. ABACAVIR. [Suspect]
     Active Substance: ABACAVIR
     Dosage: 2005?2008,JUL10?UNK
     Route: 065
     Dates: start: 2005, end: 2008
  13. INDINAVIR [Suspect]
     Active Substance: INDINAVIR
     Dosage: UNK
     Route: 065
     Dates: start: 2006
  14. SAQUINAVIR [Suspect]
     Active Substance: SAQUINAVIR
     Dosage: UNK
     Route: 065
     Dates: start: 201007
  15. LOPINAVIR/RITONAVIR [Suspect]
     Active Substance: LOPINAVIR\RITONAVIR
     Indication: PRODUCT USED FOR UNKNOWN INDICATION
     Dosage: 100 MG
     Route: 065
     Dates: start: 2005, end: 2005
  16. SAQUINAVIR [Suspect]
     Active Substance: SAQUINAVIR
     Indication: ANTIRETROVIRAL THERAPY
     Dosage: JUL07?08?JUL10?UNK
     Route: 065
     Dates: start: 200707, end: 2008
  17. RIBAVIRIN. [Suspect]
     Active Substance: RIBAVIRIN
     Indication: ANTIRETROVIRAL THERAPY
     Dosage: CAPS?2005?2005?2005?2008
     Route: 065
     Dates: start: 2006, end: 2008
  18. PEGINTRON [Suspect]
     Active Substance: PEGINTERFERON ALFA-2B
     Indication: PRODUCT USED FOR UNKNOWN INDICATION
     Dosage: UNK
     Route: 065
     Dates: start: 2005, end: 2006
  19. TENOFOVIR [Suspect]
     Active Substance: TENOFOVIR
     Dosage: UNK
     Route: 065
     Dates: start: 201007
  20. INDINAVIR SULFATE [Suspect]
     Active Substance: INDINAVIR SULFATE
     Indication: PRODUCT USED FOR UNKNOWN INDICATION
     Route: 065
     Dates: start: 2006

REACTIONS (7)
  - Hepatic cirrhosis [Unknown]
  - Fatigue [Unknown]
  - Drug resistance [Unknown]
  - Drug intolerance [Unknown]
  - Hypertension [Unknown]
  - Nausea [Unknown]
  - Vomiting [Unknown]

NARRATIVE: CASE EVENT DATE: 2005
